FAERS Safety Report 5589192-9 (Version None)
Quarter: 2008Q1

REPORT INFORMATION
  Report Type: 
  Country: None (occurrence: None)
  Receive Date: 20080109
  Receipt Date: 20080109
  Transmission Date: 20080703
  Serious: No
  Sender: FDA-Public Use
  Company Number: None

PATIENT
  Age: 59 Year
  Sex: Male
  Weight: 94 kg

DRUGS (1)
  1. CEPHALEXIN [Suspect]
     Indication: UPPER RESPIRATORY TRACT INFECTION
     Dosage: 500MG BID PO
     Route: 048
     Dates: start: 20071226, end: 20080104

REACTIONS (1)
  - ANGIOEDEMA [None]
